FAERS Safety Report 9296612 (Version 1)
Quarter: 2013Q2

REPORT INFORMATION
  Report Type: Spontaneous
  Country: GB (occurrence: GB)
  Receive Date: 20130517
  Receipt Date: 20130517
  Transmission Date: 20140414
  Serious: Yes (Hospitalization)
  Sender: FDA-Public Use
  Company Number: PHFR2012GB006744

PATIENT
  Age: 47 Year
  Sex: Female

DRUGS (4)
  1. CICLOSPORIN [Suspect]
     Route: 048
  2. SIMPONI [Suspect]
     Indication: PSORIATIC ARTHROPATHY
     Route: 058
  3. METFORMIN [Concomitant]
     Indication: DIABETES MELLITUS
  4. UNKNOWN MEDICATION [Concomitant]

REACTIONS (3)
  - Blood pressure increased [Unknown]
  - Psoriasis [Unknown]
  - Lower respiratory tract infection [Unknown]
